FAERS Safety Report 18243258 (Version 14)
Quarter: 2022Q1

REPORT INFORMATION
  Report Type: Report from Study
  Country: None (occurrence: US)
  Receive Date: 20200908
  Receipt Date: 20220321
  Transmission Date: 20220423
  Serious: Yes (Hospitalization, Other)
  Sender: FDA-Public Use
  Company Number: US-AKCEA THERAPEUTICS-2020IS001365

PATIENT
  Age: 69 Year
  Sex: Male

DRUGS (2)
  1. TEGSEDI [Suspect]
     Active Substance: INOTERSEN SODIUM
     Indication: Hereditary neuropathic amyloidosis
     Route: 058
     Dates: start: 20200423
  2. DEVICE [Suspect]
     Active Substance: DEVICE

REACTIONS (16)
  - Glucose urine present [Not Recovered/Not Resolved]
  - Feeling cold [Unknown]
  - Blood creatinine increased [Unknown]
  - Urine protein/creatinine ratio increased [Not Recovered/Not Resolved]
  - Diverticulitis [Unknown]
  - Protein urine present [Not Recovered/Not Resolved]
  - Platelet count decreased [Unknown]
  - SARS-CoV-2 test positive [Unknown]
  - Bacterial test positive [Not Recovered/Not Resolved]
  - Glomerular filtration rate decreased [Unknown]
  - Urine abnormality [Unknown]
  - Urine ketone body present [Unknown]
  - Urinary occult blood positive [Unknown]
  - Urine leukocyte esterase positive [Unknown]
  - Pyuria [Unknown]
  - White blood cells urine positive [Unknown]

NARRATIVE: CASE EVENT DATE: 20211228
